FAERS Safety Report 17102577 (Version 1)
Quarter: 2019Q4

REPORT INFORMATION
  Report Type: Spontaneous
  Country: CN (occurrence: CN)
  Receive Date: 20191202
  Receipt Date: 20191202
  Transmission Date: 20200122
  Serious: Yes (Hospitalization)
  Sender: FDA-Public Use
  Company Number: CN-BAXTER-2019BAX024141

PATIENT
  Age: 15 Year
  Sex: Female
  Weight: 48.2 kg

DRUGS (22)
  1. ONDANSETRON [Suspect]
     Active Substance: ONDANSETRON
     Dosage: ONDANSETRON + 0.9% NS, DOSE RE-INTRODUCED
     Route: 041
     Dates: start: 201911
  2. 0.9% SODIUM CHLORIDE INJECTION [Suspect]
     Active Substance: SODIUM CHLORIDE
     Indication: MEDICATION DILUTION
     Dosage: 1-2 CYCLES OF CHEMOTHERAPIES, ENDOXAN + 0.9% NS
     Route: 041
  3. 0.9% SODIUM CHLORIDE INJECTION [Suspect]
     Active Substance: SODIUM CHLORIDE
     Dosage: 1-2 CYCLES OF CHEMOTHERAPIES; VINCRISTINE SULFATE + 0.9% NS
     Route: 042
  4. 0.9% SODIUM CHLORIDE INJECTION [Suspect]
     Active Substance: SODIUM CHLORIDE
     Dosage: DOSE RE-INTRODUCED; VINCRISTINE SULFATE + 0.9% NS
     Route: 042
     Dates: start: 201911
  5. 0.9% SODIUM CHLORIDE INJECTION [Suspect]
     Active Substance: SODIUM CHLORIDE
     Dosage: 3RD CYCLE OF CHEMOTHERAPY; ENDOXAN: 1565MG + 0.9% NS: 186 ML AT 186 ML/H
     Route: 041
     Dates: start: 20191104, end: 20191105
  6. 0.9% SODIUM CHLORIDE INJECTION [Suspect]
     Active Substance: SODIUM CHLORIDE
     Dosage: ONDANSETRON + 0.9% NS, DOSE RE-INTRODUCED
     Route: 041
     Dates: start: 201911
  7. VINCRISTINE SULFATE. [Suspect]
     Active Substance: VINCRISTINE SULFATE
     Dosage: 3RD CYCLE OF CHEMOTHERAPY; VINCRISTINE SULFATE 2 MG + 0.9% NS 20 ML
     Route: 042
     Dates: start: 20191104, end: 20191104
  8. 0.9% SODIUM CHLORIDE INJECTION [Suspect]
     Active Substance: SODIUM CHLORIDE
     Dosage: DOSE RE-INTRODUCED; ETOPOSIDE + 0.9% NS
     Route: 041
     Dates: start: 201911
  9. ETOPOSIDE. [Suspect]
     Active Substance: ETOPOSIDE
     Indication: NEUROBLASTOMA
     Dosage: 1-2 CYCLES OF CHEMOTHERAPIES, ETOPOSIDE + 0.9% NS
     Route: 041
  10. ETOPOSIDE. [Suspect]
     Active Substance: ETOPOSIDE
     Dosage: 3RD CYCLE OF CHEMOTHERAPY; ETOPOSIDE: 261 MG + 0.9% NS: 1044 ML AT 261 ML/H.
     Route: 041
     Dates: start: 20191104, end: 20191105
  11. VINCRISTINE SULFATE. [Suspect]
     Active Substance: VINCRISTINE SULFATE
     Dosage: DOSE RE-INTRODUCED; VINCRISTINE SULFATE + 0.9% NS
     Route: 042
     Dates: start: 20191104
  12. 0.9% SODIUM CHLORIDE INJECTION [Suspect]
     Active Substance: SODIUM CHLORIDE
     Dosage: 3RD CYCLE OF CHEMOTHERAPY; ETOPOSIDE: 261MG + 0.9% NS 1044 ML AT 261 ML/H
     Route: 041
     Dates: start: 20191104, end: 20191105
  13. 0.9% SODIUM CHLORIDE INJECTION [Suspect]
     Active Substance: SODIUM CHLORIDE
     Dosage: 3RD CYCLE OF CHEMOTHERAPY; VINCRISTINE SULFATE: 2 MG + 0.9% NS 20 ML
     Route: 042
     Dates: start: 20191104, end: 20191104
  14. 0.9% SODIUM CHLORIDE INJECTION [Suspect]
     Active Substance: SODIUM CHLORIDE
     Dosage: ONDANSETRON 7.5 MG + 0.9% NS 25 ML, 30 MINUTES BEFORE DAILY CHEMOTHERAPY
     Route: 041
     Dates: start: 20191104, end: 20191105
  15. VINCRISTINE SULFATE. [Suspect]
     Active Substance: VINCRISTINE SULFATE
     Indication: NEUROBLASTOMA
     Dosage: 1-2 CYCLES OF CHEMOTHERAPIES, VINCRISTINE SULFATE + 0.9% NS
     Route: 042
  16. ENDOXAN [Suspect]
     Active Substance: CYCLOPHOSPHAMIDE
     Indication: NEUROBLASTOMA
     Dosage: 1-2 CYCLES OF CHEMOTHERAPIES, ENDOXAN + 0.9% NS
     Route: 041
  17. ENDOXAN [Suspect]
     Active Substance: CYCLOPHOSPHAMIDE
     Dosage: DOSE RE-INTRODUCED; ENDOXAN + 0.9% NS
     Route: 041
     Dates: start: 201911
  18. 0.9% SODIUM CHLORIDE INJECTION [Suspect]
     Active Substance: SODIUM CHLORIDE
     Dosage: DOSE RE-INTRODUCED: ENDOXAN + 0.9% NS
     Route: 041
     Dates: start: 201911
  19. ONDANSETRON [Suspect]
     Active Substance: ONDANSETRON
     Indication: PROPHYLAXIS OF NAUSEA AND VOMITING
     Dosage: ONDANSETRON 7.5 MG + 0.9% NS 25 ML, 30 MINUTES BEFORE DAILY CHEMOTHERAPY
     Route: 041
     Dates: start: 20191104, end: 20191105
  20. ENDOXAN [Suspect]
     Active Substance: CYCLOPHOSPHAMIDE
     Dosage: 3RD CYCLE OF CHEMOTHERAPY; ENDOXAN + 0.9% NS: 186 ML AT 186 ML/H.
     Route: 041
     Dates: start: 20191104, end: 20191105
  21. 0.9% SODIUM CHLORIDE INJECTION [Suspect]
     Active Substance: SODIUM CHLORIDE
     Dosage: 1-2 CYCLES OF CHEMOTHERAPIES, ETOPOSIDE + 0.9% NS
     Route: 041
  22. ETOPOSIDE. [Suspect]
     Active Substance: ETOPOSIDE
     Dosage: DOSE RE-INTRODUCED; ETOPOSIDE+ 0.9% NS
     Route: 041
     Dates: start: 201911

REACTIONS (3)
  - Neutropenia [Recovering/Resolving]
  - Leukopenia [Recovering/Resolving]
  - Thrombocytopenia [Recovering/Resolving]

NARRATIVE: CASE EVENT DATE: 20191106
